FAERS Safety Report 8315536-0 (Version None)
Quarter: 2012Q2

REPORT INFORMATION
  Report Type: 
  Country: None (occurrence: None)
  Receive Date: 20120426
  Receipt Date: 20120423
  Transmission Date: 20120825
  Serious: Yes (Hospitalization, Other)
  Sender: FDA-Public Use
  Company Number: US-PFIZER INC-2012100708

PATIENT
  Sex: Female

DRUGS (1)
  1. LIPITOR [Suspect]
     Indication: BLOOD CHOLESTEROL INCREASED
     Dosage: 80 MG, 1X/DAY
     Route: 048

REACTIONS (5)
  - PAIN [None]
  - RHEUMATOID ARTHRITIS [None]
  - IMPAIRED WORK ABILITY [None]
  - MYALGIA [None]
  - ABASIA [None]
